FAERS Safety Report 6846853-9 (Version None)
Quarter: 2010Q3

REPORT INFORMATION
  Report Type: 
  Country: None (occurrence: None)
  Receive Date: 20100715
  Receipt Date: 20070923
  Transmission Date: 20110219
  Serious: No
  Sender: FDA-Public Use
  Company Number: US-PFIZER INC-2007080624

PATIENT
  Sex: Female
  Weight: 54.545 kg

DRUGS (4)
  1. CHANTIX [Suspect]
     Indication: SMOKING CESSATION THERAPY
     Route: 048
     Dates: start: 20070907
  2. KLONOPIN [Concomitant]
     Indication: BIPOLAR DISORDER
     Route: 048
     Dates: start: 20050101
  3. CELEXA [Concomitant]
     Indication: ANXIETY
     Route: 048
     Dates: start: 20050101
  4. CRESTOR [Concomitant]
     Route: 048
     Dates: start: 20070901

REACTIONS (5)
  - ANXIETY [None]
  - DYSPEPSIA [None]
  - ERUCTATION [None]
  - NAUSEA [None]
  - PALPITATIONS [None]
